FAERS Safety Report 18182995 (Version 5)
Quarter: 2020Q4

REPORT INFORMATION
  Report Type: Report from Study
  Country: None (occurrence: IL)
  Receive Date: 20200822
  Receipt Date: 20201021
  Transmission Date: 20210113
  Serious: Yes (Hospitalization)
  Sender: FDA-Public Use
  Company Number: IL-ABBVIE-20K-082-3531784-00

PATIENT
  Sex: Female

DRUGS (4)
  1. HUMIRA [Suspect]
     Active Substance: ADALIMUMAB
     Indication: CROHN^S DISEASE
     Route: 058
     Dates: start: 20200819, end: 20200827
  2. HUMIRA [Suspect]
     Active Substance: ADALIMUMAB
     Indication: CROHN^S DISEASE
     Dosage: LOADING DOSE
     Route: 058
     Dates: start: 20130225, end: 2013
  3. HUMIRA [Suspect]
     Active Substance: ADALIMUMAB
     Route: 058
     Dates: start: 2013
  4. HUMIRA [Suspect]
     Active Substance: ADALIMUMAB
     Route: 058
     Dates: start: 20201014, end: 20201014

REACTIONS (12)
  - Fistula [Unknown]
  - Intestinal mass [Unknown]
  - Weight decreased [Unknown]
  - Procedural pain [Unknown]
  - Post procedural oedema [Unknown]
  - Injection site pain [Recovered/Resolved]
  - Fear [Unknown]
  - Intestinal obstruction [Unknown]
  - Wound secretion [Not Recovered/Not Resolved]
  - Rash [Recovered/Resolved]
  - Gastrointestinal inflammation [Unknown]
  - Inflammation [Unknown]

NARRATIVE: CASE EVENT DATE: 2020
